FAERS Safety Report 9136466 (Version 1)
Quarter: 2013Q1

REPORT INFORMATION
  Report Type: Report from Study
  Country: US (occurrence: US)
  Receive Date: 20130304
  Receipt Date: 20130304
  Transmission Date: 20140127
  Serious: No
  Sender: FDA-Public Use
  Company Number: US-ABBOTT-12P-163-0980995-00

PATIENT
  Age: 39 Year
  Sex: Male
  Weight: 92.16 kg

DRUGS (3)
  1. ANDROGEL [Suspect]
     Indication: BLOOD TESTOSTERONE DECREASED
     Dates: start: 201105, end: 2012
  2. ANDROGEL [Suspect]
     Indication: BLOOD TESTOSTERONE DECREASED
     Dosage: 4 PUMPS PER DAY
     Dates: start: 2012, end: 201201
  3. ANDROGEL [Suspect]
     Dosage: 1 PUMPS PER DAY
     Dates: start: 201201

REACTIONS (3)
  - Application site pain [Recovered/Resolved]
  - Skin disorder [Recovered/Resolved]
  - Blood testosterone decreased [Unknown]
